FAERS Safety Report 11310807 (Version 1)
Quarter: 2015Q3

REPORT INFORMATION
  Report Type: Spontaneous
  Country: AU (occurrence: AU)
  Receive Date: 20150726
  Receipt Date: 20150726
  Transmission Date: 20151125
  Serious: Yes (Death)
  Sender: FDA-Public Use
  Company Number: AU-CIPLA LTD.-2015IT05966

PATIENT

DRUGS (3)
  1. OXALIPLATIN. [Suspect]
     Active Substance: OXALIPLATIN
     Indication: OVARIAN CANCER RECURRENT
     Dosage: 130 MG/M2 ON DAY 8 FOLLOWING THE GEMCITABINE INFUSION APPROXIMATELY 2 HOURS
     Route: 042
  2. GEMCITABINE [Suspect]
     Active Substance: GEMCITABINE\GEMCITABINE HYDROCHLORIDE
     Indication: OVARIAN CANCER RECURRENT
     Dosage: 1000 MG/M2 FOR 30-60 MIN ON DAYS 1 AND 8 OF A 21-DAY CYCLE
     Route: 042
  3. DEXAMETHASONE. [Concomitant]
     Active Substance: DEXAMETHASONE
     Indication: PREMEDICATION
     Dosage: 8 MG, ORAL OR INTRAVENOUS BEFORE THE START OF CHEMOTHERAPY

REACTIONS (1)
  - Disease progression [Fatal]
